FAERS Safety Report 10387155 (Version 1)
Quarter: 2014Q3

REPORT INFORMATION
  Report Type: Spontaneous
  Country: US (occurrence: US)
  Receive Date: 20140815
  Receipt Date: 20140815
  Transmission Date: 20150326
  Serious: Yes (Other)
  Sender: FDA-Public Use
  Company Number: US-PFIZER INC-2014227536

PATIENT
  Age: 44 Year
  Sex: Female
  Weight: 58.05 kg

DRUGS (4)
  1. EFFEXOR XR [Suspect]
     Active Substance: VENLAFAXINE HYDROCHLORIDE
     Dosage: 75 MG, 1X/DAY
     Route: 048
     Dates: start: 2011, end: 2013
  2. EFFEXOR XR [Suspect]
     Active Substance: VENLAFAXINE HYDROCHLORIDE
     Dosage: 100 MG, 1X/DAY
     Route: 048
     Dates: start: 2013
  3. WELLBUTRIN [Concomitant]
     Active Substance: BUPROPION HYDROCHLORIDE
     Dosage: 150 MG, 1X/DAY
     Dates: start: 2014
  4. VYVANSE [Concomitant]
     Active Substance: LISDEXAMFETAMINE DIMESYLATE
     Dosage: 70 MG, UNK

REACTIONS (9)
  - Loss of consciousness [Unknown]
  - Gastroenteritis [Unknown]
  - Dizziness [Unknown]
  - Feeling abnormal [Unknown]
  - Pulse abnormal [Unknown]
  - Hyperhidrosis [Unknown]
  - Malaise [Unknown]
  - Gastrointestinal infection [Unknown]
  - Vomiting [Unknown]

NARRATIVE: CASE EVENT DATE: 201406
